FAERS Safety Report 7122064-7 (Version None)
Quarter: 2010Q4

REPORT INFORMATION
  Report Type: 
  Country: None (occurrence: None)
  Receive Date: 20101124
  Receipt Date: 20101123
  Transmission Date: 20110411
  Serious: Yes (Hospitalization)
  Sender: FDA-Public Use
  Company Number: B0685800A

PATIENT
  Sex: Female
  Weight: 65 kg

DRUGS (16)
  1. AUGMENTIN [Suspect]
     Route: 065
  2. BLINDED TRIAL MEDICATION [Suspect]
     Indication: ACUTE CORONARY SYNDROME
     Route: 048
     Dates: start: 20091208
  3. ASPIRIN [Concomitant]
     Indication: ACUTE CORONARY SYNDROME
  4. CLOPIDOGREL [Concomitant]
     Indication: ACUTE CORONARY SYNDROME
     Route: 065
  5. CILAZAPRIL [Concomitant]
  6. DOMPERIDONE [Concomitant]
  7. IMOVANE [Concomitant]
  8. NICOTINE [Concomitant]
  9. SIMVASTATIN [Concomitant]
  10. PANTOPRAZOLE [Concomitant]
  11. PARACETAMOL [Concomitant]
  12. CODEINE [Concomitant]
  13. ZYBAN [Concomitant]
  14. ONDANSETRON [Concomitant]
  15. METOPROLOL [Concomitant]
  16. GTN SPRAY [Concomitant]

REACTIONS (1)
  - ABDOMINAL PAIN UPPER [None]
